FAERS Safety Report 8390003-7 (Version None)
Quarter: 2012Q2

REPORT INFORMATION
  Report Type: 
  Country: None (occurrence: None)
  Receive Date: 20120529
  Receipt Date: 20120524
  Transmission Date: 20120825
  Serious: No
  Sender: FDA-Public Use
  Company Number: US-PFIZER INC-2012126531

PATIENT
  Sex: Female

DRUGS (2)
  1. NICOTROL [Suspect]
     Indication: SMOKING CESSATION THERAPY
     Dosage: UNK, 1X/DAY
     Route: 055
     Dates: start: 20120517, end: 20120524
  2. NICOTINE [Concomitant]
     Dosage: UNK

REACTIONS (5)
  - COUGH [None]
  - PARAESTHESIA [None]
  - HEAD DISCOMFORT [None]
  - DYSGEUSIA [None]
  - THROAT IRRITATION [None]
